FAERS Safety Report 5004273-6 (Version None)
Quarter: 2006Q2

REPORT INFORMATION
  Report Type: 
  Country: None (occurrence: None)
  Receive Date: 20060517
  Receipt Date: 20060508
  Transmission Date: 20061013
  Serious: Yes (Other)
  Sender: FDA-Public Use
  Company Number: PHEH2006US06070

PATIENT
  Age: 36 Year
  Sex: Female

DRUGS (4)
  1. TRILEPTAL [Suspect]
     Indication: NEURALGIA
     Dosage: 150 MG, BID
     Route: 048
     Dates: start: 20060201
  2. ZANAFLEX [Suspect]
  3. COPAXONE [Suspect]
  4. TOPAMAX [Suspect]
     Indication: NEURALGIA

REACTIONS (5)
  - DRUG INEFFECTIVE [None]
  - DRUG INTERACTION INHIBITION [None]
  - HYPOAESTHESIA [None]
  - MULTIPLE SCLEROSIS [None]
  - PAIN [None]
